FAERS Safety Report 24440519 (Version 1)
Quarter: 2024Q4

REPORT INFORMATION
  Report Type: Report from Study
  Country: US (occurrence: US)
  Receive Date: 20241016
  Receipt Date: 20241016
  Transmission Date: 20250114
  Serious: Yes (Hospitalization)
  Sender: UCB
  Company Number: US-UCBSA-2024013422

PATIENT
  Age: 0 Year
  Sex: Female
  Weight: 9.1 kg

DRUGS (4)
  1. FINTEPLA [Suspect]
     Active Substance: FENFLURAMINE
     Indication: Lennox-Gastaut syndrome
     Dosage: 1.4 MILLILITER, 2X/DAY (BID)
     Route: 048
     Dates: start: 20240312, end: 20240411
  2. FINTEPLA [Suspect]
     Active Substance: FENFLURAMINE
     Dosage: 0.4 MILLILITER, 2X/DAY (BID)
  3. KEPPRA [Suspect]
     Active Substance: LEVETIRACETAM
     Indication: Seizure
     Dosage: 1.5 MILLILITER, 2X/DAY (BID) ROUTE: PER TUBE
     Dates: start: 202305
  4. SABRIL [Concomitant]
     Active Substance: VIGABATRIN
     Indication: Seizure
     Dosage: 10 MILLILITER, 2X/DAY (BID) PER TUBE
     Dates: start: 20230525

REACTIONS (5)
  - Drug ineffective [Unknown]
  - Illness [Unknown]
  - Seizure [Unknown]
  - Gastrointestinal disorder [Unknown]
  - Off label use [Unknown]

NARRATIVE: CASE EVENT DATE: 20230501
